FAERS Safety Report 7878340-3 (Version None)
Quarter: 2011Q4

REPORT INFORMATION
  Report Type: 
  Country: None (occurrence: None)
  Receive Date: 20111031
  Receipt Date: 20111017
  Transmission Date: 20120403
  Serious: Yes (Other)
  Sender: FDA-Public Use
  Company Number: TPA2011A05763

PATIENT
  Sex: Male

DRUGS (1)
  1. ACTOS [Suspect]
     Dates: end: 20100217

REACTIONS (1)
  - BLADDER CANCER RECURRENT [None]
